FAERS Safety Report 12383429 (Version 3)
Quarter: 2016Q4

REPORT INFORMATION
  Report Type: Spontaneous
  Country: FI (occurrence: FI)
  Receive Date: 20160518
  Receipt Date: 20161130
  Transmission Date: 20170207
  Serious: Yes (Other)
  Sender: FDA-Public Use
  Company Number: FI-SEATTLE GENETICS-2016SGN00787

PATIENT

DRUGS (2)
  1. ADCETRIS [Suspect]
     Active Substance: BRENTUXIMAB VEDOTIN
     Indication: HODGKIN^S DISEASE
     Dosage: UNK
     Route: 042
  2. THYROXIN [Concomitant]
     Active Substance: LEVOTHYROXINE
     Dosage: UNK
     Route: 048

REACTIONS (2)
  - Skin disorder [Unknown]
  - Urticaria [Unknown]
